FAERS Safety Report 15328828 (Version 2)
Quarter: 2018Q3

REPORT INFORMATION
  Report Type: Report from Study
  Country: US (occurrence: US)
  Receive Date: 20180829
  Receipt Date: 20180925
  Transmission Date: 20181010
  Serious: Yes (Other)
  Sender: FDA-Public Use
  Company Number: US-BRISTOL-MYERS SQUIBB COMPANY-BMS-2018-079352

PATIENT
  Age: 71 Year
  Sex: Female

DRUGS (2)
  1. NIVOLUMAB [Suspect]
     Active Substance: NIVOLUMAB
     Indication: NON-SMALL CELL LUNG CANCER
     Dosage: UNK, Q2WK
     Route: 042
  2. NIVOLUMAB [Suspect]
     Active Substance: NIVOLUMAB
     Indication: PRODUCT USED FOR UNKNOWN INDICATION
     Dosage: UNK, Q4WK
     Route: 042
     Dates: start: 20180808

REACTIONS (8)
  - Fatigue [Unknown]
  - Joint swelling [Unknown]
  - Dry skin [Unknown]
  - Asthenia [Unknown]
  - Decreased appetite [Unknown]
  - Cerebrovascular accident [Unknown]
  - Chest pain [Unknown]
  - Metastases to heart [Unknown]

NARRATIVE: CASE EVENT DATE: 201808
